FAERS Safety Report 7344861-5 (Version None)
Quarter: 2011Q1

REPORT INFORMATION
  Report Type: 
  Country: None (occurrence: None)
  Receive Date: 20110310
  Receipt Date: 20110302
  Transmission Date: 20110831
  Serious: Yes (Other)
  Sender: FDA-Public Use
  Company Number: GB-PURDUE-GBR-2004-0001420

PATIENT
  Age: 73 Year
  Sex: Female
  Weight: 85 kg

DRUGS (6)
  1. BECLOMETHASONE DIPROPIONATE [Concomitant]
     Indication: ASTHMA
     Route: 055
     Dates: start: 20020716
  2. DIHYDROCODEINE BITARTRATE [Suspect]
     Indication: SCIATICA
     Dosage: 2,  30 MG THREE TIMES DAILY
     Route: 048
     Dates: end: 20041013
  3. SALBUTAMOL [Concomitant]
     Indication: ASTHMA
     Dosage: UNK, UNK
     Route: 055
     Dates: start: 20020716
  4. LYRICA [Interacting]
     Dosage: 150 MG, BID
     Route: 048
  5. LYRICA [Interacting]
     Dosage: 75 MG, BID
  6. LYRICA [Interacting]
     Indication: NEURALGIA
     Dosage: 150 MG, BID
     Route: 048

REACTIONS (2)
  - DRUG INTERACTION [None]
  - COMA [None]
